FAERS Safety Report 5902907-2 (Version None)
Quarter: 2008Q3

REPORT INFORMATION
  Report Type: 
  Country: None (occurrence: None)
  Receive Date: 20080929
  Receipt Date: 20080929
  Transmission Date: 20090109
  Serious: No
  Sender: FDA-Public Use
  Company Number: None

PATIENT
  Age: 9 Year
  Sex: Male
  Weight: 29.0302 kg

DRUGS (2)
  1. SINGULAIR [Suspect]
     Indication: ASTHMA
     Dosage: 1 TABLET DAILY AT NIGHT PO, 2003-2008 -ESTIMATE-
     Route: 048
     Dates: start: 20030101, end: 20080101
  2. SINGULAIR [Suspect]
     Indication: HYPERSENSITIVITY
     Dosage: 1 TABLET DAILY AT NIGHT PO, 2003-2008 -ESTIMATE-
     Route: 048
     Dates: start: 20030101, end: 20080101

REACTIONS (1)
  - ABNORMAL BEHAVIOUR [None]
